FAERS Safety Report 7901947 (Version 8)
Quarter: 2013Q1

REPORT INFORMATION
  Report Type: Spontaneous
  Country: FR (occurrence: None)
  Receive Date: 20110324
  Receipt Date: 20121130
  Transmission Date: 20140127
  Serious: Yes (Hospitalization)
  Sender: FDA-Public Use
  Company Number: 2011-0679

PATIENT
  Age: 7 Year
  Sex: Male
  Weight: 15 kg

DRUGS (3)
  1. INCRELEX [Suspect]
     Indication: FOETAL GROWTH RESTRICTION
     Dosage: (0.04 MG/KG,2 IN 1 D)
     Route: 058
     Dates: start: 20100629, end: 20100705
  2. OTHER CHRONIC MEDICATIONS (ALL OTHER THERAPEUTIC PRODUCTS) [Concomitant]
  3. LEVOTHYROXINE SODIUM [Concomitant]

REACTIONS (17)
  - Hepatic cirrhosis [None]
  - Toxoplasmosis [None]
  - Bronchitis [None]
  - Ear infection [None]
  - Nasopharyngitis [None]
  - Anaemia [None]
  - Febrile convulsion [None]
  - Gastroenteritis [None]
  - Culture urine positive [None]
  - Escherichia test positive [None]
  - Malnutrition [None]
  - Lung disorder [None]
  - Epstein-Barr virus infection [None]
  - Splenic varices [None]
  - Portal hypertension [None]
  - Hepatitis [None]
  - Cerebral atrophy [None]
